FAERS Safety Report 9846822 (Version 3)
Quarter: 2014Q1

REPORT INFORMATION
  Report Type: Spontaneous
  Country: FR (occurrence: FR)
  Receive Date: 20140127
  Receipt Date: 20140213
  Transmission Date: 20141002
  Serious: Yes (Death)
  Sender: FDA-Public Use
  Company Number: FR-ASTRAZENECA-2014SE05459

PATIENT
  Age: 18315 Day
  Sex: Female

DRUGS (4)
  1. XEROQUEL [Suspect]
     Indication: BIPOLAR DISORDER
     Route: 048
     Dates: start: 201208
  2. CRESTOR [Suspect]
     Route: 048
  3. CYMBALTA [Suspect]
     Route: 065
  4. ATARAX [Suspect]
     Route: 065

REACTIONS (1)
  - Death [Fatal]
